FAERS Safety Report 22005322 (Version 3)
Quarter: 2023Q4

REPORT INFORMATION
  Report Type: Spontaneous
  Country: KR (occurrence: KR)
  Receive Date: 20230217
  Receipt Date: 20231129
  Transmission Date: 20240110
  Serious: Yes (Hospitalization, Other)
  Sender: FDA-Public Use
  Company Number: KR-009507513-2302KOR005781

PATIENT
  Age: 50 Year
  Sex: Female
  Weight: 90.9 kg

DRUGS (17)
  1. PEMBROLIZUMAB [Suspect]
     Active Substance: PEMBROLIZUMAB
     Indication: Endometrial cancer stage II
     Dosage: 200 MILLIGRAM
     Route: 042
     Dates: start: 20210806, end: 20210806
  2. PEMBROLIZUMAB [Suspect]
     Active Substance: PEMBROLIZUMAB
     Dosage: 200 MILLIGRAM
     Route: 042
     Dates: start: 20210827, end: 20210827
  3. PEMBROLIZUMAB [Suspect]
     Active Substance: PEMBROLIZUMAB
     Dosage: 200 MILLIGRAM
     Route: 042
     Dates: start: 20210929, end: 20210929
  4. PEMBROLIZUMAB [Suspect]
     Active Substance: PEMBROLIZUMAB
     Dosage: 200 MILLIGRAM
     Route: 042
     Dates: start: 20211020, end: 20211020
  5. PEMBROLIZUMAB [Suspect]
     Active Substance: PEMBROLIZUMAB
     Dosage: 200 MILLIGRAM
     Route: 042
     Dates: start: 20211110, end: 20211110
  6. PEMBROLIZUMAB [Suspect]
     Active Substance: PEMBROLIZUMAB
     Dosage: 200 MILLIGRAM
     Route: 042
     Dates: start: 20211201, end: 20211201
  7. PEMBROLIZUMAB [Suspect]
     Active Substance: PEMBROLIZUMAB
     Dosage: 200 MILLIGRAM
     Route: 042
     Dates: start: 20211230, end: 20211230
  8. PEMBROLIZUMAB [Suspect]
     Active Substance: PEMBROLIZUMAB
     Dosage: 200 MILLIGRAM
     Route: 042
     Dates: start: 20220317, end: 20220317
  9. LENVATINIB MESYLATE [Suspect]
     Active Substance: LENVATINIB MESYLATE
     Indication: Endometrial cancer stage II
     Dosage: 20 MILLIGRAM DAILY
     Route: 048
     Dates: start: 20210806, end: 20210817
  10. LENVATINIB MESYLATE [Suspect]
     Active Substance: LENVATINIB MESYLATE
     Dosage: 14 MILLIGRAM DAILY
     Route: 048
     Dates: start: 20210818, end: 20210827
  11. LENVATINIB MESYLATE [Suspect]
     Active Substance: LENVATINIB MESYLATE
     Dosage: 10 MILLIGRAM DAILY
     Route: 048
     Dates: start: 20210929, end: 20220322
  12. CYMBALTA [Concomitant]
     Active Substance: DULOXETINE HYDROCHLORIDE
     Indication: Neuropathy peripheral
     Dosage: 60 MILLIGRAM, QD
     Route: 048
  13. ATROVAN [Concomitant]
     Indication: Dyslipidaemia
     Dosage: 10 MILLIGRAM, QD
     Route: 048
  14. LYRICA [Concomitant]
     Active Substance: PREGABALIN
     Indication: Neuropathy peripheral
     Dosage: 150 MILLIGRAM, QD
     Route: 048
  15. NEURONTIN [Concomitant]
     Active Substance: GABAPENTIN
     Indication: Neuropathy peripheral
     Dosage: 100 MILLIGRAM, QD
     Route: 048
  16. PROPIVERINE [Concomitant]
     Active Substance: PROPIVERINE
     Indication: Cystitis
     Dosage: 2 TABLETS
     Route: 048
     Dates: start: 20220106, end: 20220214
  17. ENTERON [LACTOBACILLUS PLANTARUM] [Concomitant]
     Indication: Lymphoedema
     Dosage: UNK, TOTAL DAILY DOSE: 300 MG
     Route: 048

REACTIONS (30)
  - Haematuria [Recovered/Resolved]
  - Proteinuria [Recovered/Resolved]
  - Hypertension [Recovered/Resolved]
  - Acute kidney injury [Recovered/Resolved]
  - Autoimmune disorder [Recovering/Resolving]
  - Hepatotoxicity [Recovered/Resolved]
  - Hypotension [Recovered/Resolved]
  - SARS-CoV-2 test positive [Recovered/Resolved]
  - Diabetic ketoacidosis [Recovered/Resolved]
  - Dizziness [Recovered/Resolved]
  - Pneumomediastinum [Recovered/Resolved]
  - Acute kidney injury [Recovered/Resolved]
  - Pyrexia [Recovered/Resolved]
  - Pain [Recovered/Resolved]
  - Cough [Recovered/Resolved]
  - Myalgia [Recovered/Resolved]
  - Hypertension [Recovered/Resolved]
  - Stomatitis [Recovered/Resolved]
  - Nausea [Recovered/Resolved]
  - Nausea [Recovered/Resolved]
  - Myalgia [Recovered/Resolved]
  - Arthralgia [Recovered/Resolved]
  - Cystitis [Recovered/Resolved]
  - Proteinuria [Recovered/Resolved]
  - Inappropriate schedule of product administration [Unknown]
  - Inappropriate schedule of product administration [Unknown]
  - Inappropriate schedule of product administration [Unknown]
  - Product use issue [Unknown]
  - Product use issue [Unknown]
  - Product use issue [Unknown]

NARRATIVE: CASE EVENT DATE: 20210806
